FAERS Safety Report 8366560-3 (Version None)
Quarter: 2012Q2

REPORT INFORMATION
  Report Type: 
  Country: None (occurrence: None)
  Receive Date: 20120516
  Receipt Date: 20120516
  Transmission Date: 20120825
  Serious: Yes (Hospitalization, Other)
  Sender: FDA-Public Use
  Company Number: None

PATIENT
  Sex: Female
  Weight: 68.0396 kg

DRUGS (1)
  1. PREDNISONE [Suspect]
     Indication: INFLAMMATION
     Dates: start: 20120227

REACTIONS (5)
  - CHEST PAIN [None]
  - PSYCHOMOTOR HYPERACTIVITY [None]
  - PANIC ATTACK [None]
  - INSOMNIA [None]
  - RESTLESSNESS [None]
